FAERS Safety Report 18288647 (Version 1)
Quarter: 2020Q3

REPORT INFORMATION
  Report Type: Spontaneous
  Country: US (occurrence: US)
  Receive Date: 20200920
  Receipt Date: 20200920
  Transmission Date: 20201103
  Serious: Yes (Disabling)
  Sender: FDA-Public Use
  Company Number: None

PATIENT

DRUGS (1)
  1. DUPIXENT [Suspect]
     Active Substance: DUPILUMAB
     Indication: ASTHMA

REACTIONS (8)
  - Gamma-glutamyltransferase increased [None]
  - Gallbladder disorder [None]
  - Nausea [None]
  - Hepatic steatosis [None]
  - Dyshidrotic eczema [None]
  - Abdominal distension [None]
  - Abdominal tenderness [None]
  - Constipation [None]

NARRATIVE: CASE EVENT DATE: 20200701
